FAERS Safety Report 5237612-1 (Version None)
Quarter: 2007Q1

REPORT INFORMATION
  Report Type: 
  Country: None (occurrence: None)
  Receive Date: 20070213
  Receipt Date: 20070202
  Transmission Date: 20070707
  Serious: Yes (Hospitalization)
  Sender: FDA-Public Use
  Company Number: JP-PFIZER INC-2006080793

PATIENT
  Sex: Female

DRUGS (4)
  1. ZYRTEC [Suspect]
     Indication: DERMATITIS
     Dosage: DAILY DOSE:10MG
     Route: 048
  2. MONTELUKAST SODIUM [Suspect]
     Indication: DRUG USE FOR UNKNOWN INDICATION
     Route: 048
  3. DIFLUPREDNATE [Suspect]
     Route: 061
  4. BUDESONIDE [Concomitant]
     Indication: DRUG USE FOR UNKNOWN INDICATION
     Route: 055

REACTIONS (1)
  - STEVENS-JOHNSON SYNDROME [None]
